FAERS Safety Report 23266645 (Version 1)
Quarter: 2023Q4

REPORT INFORMATION
  Report Type: Spontaneous
  Country: US (occurrence: None)
  Receive Date: 20231205
  Receipt Date: 20231205
  Transmission Date: 20240110
  Serious: No
  Sender: FDA-Public Use
  Company Number: None

PATIENT
  Sex: Female

DRUGS (5)
  1. HUMIRA [Suspect]
     Active Substance: ADALIMUMAB
     Indication: Rheumatoid arthritis
     Dosage: OTHER FREQUENCY : EVERY 10 DAYS;?
     Route: 058
     Dates: start: 202210
  2. HUMIRA [Concomitant]
     Active Substance: ADALIMUMAB
  3. DOXYCYCLINE [Concomitant]
     Active Substance: DOXYCYCLINE
  4. METHOTREXATES DV [Concomitant]
  5. FASENRA PEN AUTOINJECTOR [Concomitant]

REACTIONS (2)
  - Blister [None]
  - Rash [None]
